FAERS Safety Report 5780979-6 (Version None)
Quarter: 2008Q2

REPORT INFORMATION
  Report Type: 
  Country: None (occurrence: None)
  Receive Date: 20080618
  Receipt Date: 20080610
  Transmission Date: 20081010
  Serious: Yes (Death)
  Sender: FDA-Public Use
  Company Number: 163-21880-08060821

PATIENT
  Age: 81 Year

DRUGS (2)
  1. REVLIMID [Suspect]
     Indication: MULTIPLE MYELOMA
     Dosage: 10 MG, DAILY, ORAL
     Route: 048
  2. EPO (ERYTHROPOIETIN) [Concomitant]

REACTIONS (2)
  - DRUG INEFFECTIVE [None]
  - INFECTION [None]
